FAERS Safety Report 23453901 (Version 4)
Quarter: 2024Q4

REPORT INFORMATION
  Report Type: Spontaneous
  Country: GB (occurrence: GB)
  Receive Date: 20240129
  Receipt Date: 20241105
  Transmission Date: 20250115
  Serious: Yes (Hospitalization, Other)
  Sender: AMGEN
  Company Number: GB-Vifor (International) Inc.-VIT-2024-00468

PATIENT
  Age: 78 Year
  Sex: Male
  Weight: 79.6 kg

DRUGS (30)
  1. TAVNEOS [Suspect]
     Active Substance: AVACOPAN
     Indication: Anti-neutrophil cytoplasmic antibody positive vasculitis
     Dosage: DATE OF LAST DOSE PRIOR TO ONSET OF EVENT WAS ON 29-DEC-2023
     Route: 048
     Dates: start: 20231020, end: 20240104
  2. TAVNEOS [Suspect]
     Active Substance: AVACOPAN
     Dosage: 20 MILLIGRAM, QD
     Route: 048
     Dates: start: 20240105
  3. PREDNISOLONE [Concomitant]
     Active Substance: PREDNISOLONE
     Indication: Anti-neutrophil cytoplasmic antibody positive vasculitis
     Dosage: DAILY (OD)
     Route: 048
     Dates: start: 2023, end: 20230901
  4. PREDNISOLONE [Concomitant]
     Active Substance: PREDNISOLONE
     Indication: Myasthenia gravis
     Dosage: DAILY (OD)
     Route: 048
     Dates: start: 20230902, end: 20230907
  5. PREDNISOLONE [Concomitant]
     Active Substance: PREDNISOLONE
     Dosage: DAILY (OD)
     Route: 048
     Dates: start: 20230911, end: 20230911
  6. PREDNISOLONE [Concomitant]
     Active Substance: PREDNISOLONE
     Dosage: DAILY (OD)
     Route: 048
     Dates: start: 20230912, end: 202309
  7. PREDNISOLONE [Concomitant]
     Active Substance: PREDNISOLONE
     Dosage: DAILY (OD)
     Route: 048
     Dates: start: 202309, end: 202309
  8. PREDNISOLONE [Concomitant]
     Active Substance: PREDNISOLONE
     Dosage: DAILY (OD)
     Route: 048
     Dates: start: 202309, end: 202309
  9. PREDNISOLONE [Concomitant]
     Active Substance: PREDNISOLONE
     Dosage: DAILY (OD)
     Route: 048
     Dates: start: 202309, end: 20230930
  10. PREDNISOLONE [Concomitant]
     Active Substance: PREDNISOLONE
     Dosage: DAILY (OD)
     Route: 048
     Dates: start: 20231001, end: 20231005
  11. PREDNISOLONE [Concomitant]
     Active Substance: PREDNISOLONE
     Dosage: DAILY (OD)
     Route: 048
     Dates: start: 20231006, end: 202310
  12. PREDNISOLONE [Concomitant]
     Active Substance: PREDNISOLONE
     Dosage: DAILY (OD)
     Route: 048
     Dates: start: 20231020, end: 20231031
  13. PREDNISOLONE [Concomitant]
     Active Substance: PREDNISOLONE
     Dosage: DAILY (OD)
     Route: 048
     Dates: start: 202310, end: 20231019
  14. PREDNISOLONE [Concomitant]
     Active Substance: PREDNISOLONE
     Dosage: DAILY (OD)
     Route: 048
     Dates: start: 20231101, end: 202311
  15. PREDNISOLONE [Concomitant]
     Active Substance: PREDNISOLONE
     Dosage: DAILY (OD)
     Route: 048
     Dates: start: 20240111, end: 20240117
  16. PREDNISOLONE [Concomitant]
     Active Substance: PREDNISOLONE
     Dosage: DAILY (OD)
     Route: 048
     Dates: start: 20240118, end: 20240124
  17. PREDNISOLONE [Concomitant]
     Active Substance: PREDNISOLONE
     Dosage: DAILY (OD)
     Route: 048
     Dates: start: 20240125, end: 20240131
  18. PREDNISOLONE [Concomitant]
     Active Substance: PREDNISOLONE
     Dosage: DAILY (OD)
     Route: 048
     Dates: start: 20240201, end: 20240208
  19. CLOPIDOGREL [Concomitant]
     Active Substance: CLOPIDOGREL BISULFATE
     Indication: Atrial fibrillation
     Dosage: UNK
     Route: 048
     Dates: start: 20231013
  20. ACETAMINOPHEN [Concomitant]
     Active Substance: ACETAMINOPHEN
     Indication: Pain assessment
     Dates: start: 20231011
  21. BECLOMETHASONE DIPROPIONATE [Concomitant]
     Active Substance: BECLOMETHASONE DIPROPIONATE
     Indication: Dyspnoea
     Dosage: 100 MICROGRAMS/DOSE INHALER
     Dates: start: 20170825
  22. CALCIUM CARBONATE\CHOLECALCIFEROL [Concomitant]
     Active Substance: CALCIUM CARBONATE\CHOLECALCIFEROL
     Indication: Prophylaxis
     Dosage: 1.5 GRAM + 10 MICROGRAM PER CHEWABLE TABLET
     Route: 048
     Dates: start: 20201211
  23. COTRIMOXAZOLE [Concomitant]
     Active Substance: SULFAMETHOXAZOLE\TRIMETHOPRIM
     Indication: Prophylaxis
     Dosage: 80MG/400MG TABLETS
     Route: 048
     Dates: start: 20230908
  24. FOLIC ACID [Concomitant]
     Active Substance: FOLIC ACID
     Indication: Prophylaxis
     Dosage: 5 MILLIGRAM, QD
     Route: 048
     Dates: start: 2023, end: 20231219
  25. LANSOPRAZOLE [Concomitant]
     Active Substance: LANSOPRAZOLE
     Indication: Gastrointestinal disorder prophylaxis
     Dosage: 30 MILLIGRAM, QD
     Route: 048
     Dates: start: 20150522, end: 20231219
  26. PRAVASTATIN [Concomitant]
     Active Substance: PRAVASTATIN
     Indication: Prophylaxis
     Dosage: 20 MILLIGRAM, QD
     Route: 048
     Dates: start: 20140512, end: 20231219
  27. ALBUTEROL [Concomitant]
     Active Substance: ALBUTEROL
     Indication: Dyspnoea
     Dosage: 100 MICROGRAMS/DOSE INHALER
     Dates: start: 20161208, end: 20231219
  28. XAILIN NIGHT [Concomitant]
     Indication: Eyelid ptosis
     Dosage: NIGHT EYE OINTMENT PRESERVATIVE-FREE
     Dates: start: 2020
  29. POLYETHYLENE GLYCOLS [Concomitant]
     Active Substance: POLYETHYLENE GLYCOLS
     Indication: Constipation
     Dosage: 1 DOSAGE FORM
     Route: 048
     Dates: start: 20201117, end: 20240108
  30. POLYETHYLENE GLYCOLS [Concomitant]
     Active Substance: POLYETHYLENE GLYCOLS
     Dosage: 2 DOSAGE FORM, QD
     Route: 048
     Dates: start: 20240109, end: 20240128

REACTIONS (6)
  - Pulmonary oedema [Recovered/Resolved]
  - Lower respiratory tract infection [Recovered/Resolved]
  - Pruritus [Recovered/Resolved]
  - Thoracic vertebral fracture [Recovered/Resolved]
  - Constipation [Recovered/Resolved]
  - Anaemia [Recovering/Resolving]

NARRATIVE: CASE EVENT DATE: 20231201
